FAERS Safety Report 11145974 (Version 1)
Quarter: 2015Q2

REPORT INFORMATION
  Report Type: Report from Study
  Country: FR (occurrence: FR)
  Receive Date: 20150528
  Receipt Date: 20150528
  Transmission Date: 20150821
  Serious: Yes (Hospitalization)
  Sender: FDA-Public Use
  Company Number: FR-GLAXOSMITHKLINE-FR2015GSK072901

PATIENT
  Age: 90 Year
  Sex: Male

DRUGS (6)
  1. SOTALEX [Concomitant]
     Active Substance: SOTALOL
  2. OMEGA-3-ACID ETHYL ESTERS. [Suspect]
     Active Substance: OMEGA-3-ACID ETHYL ESTERS
     Indication: ISCHAEMIC HEART DISEASE PROPHYLAXIS
     Dosage: UNK
     Dates: start: 20070425, end: 20100113
  3. LOXEN [Concomitant]
     Active Substance: NICARDIPINE HYDROCHLORIDE
  4. KARDEGIC [Concomitant]
     Active Substance: ASPIRIN LYSINE
  5. PLAVIX [Concomitant]
     Active Substance: CLOPIDOGREL BISULFATE
  6. ODRIK [Concomitant]
     Active Substance: TRANDOLAPRIL

REACTIONS (1)
  - Fall [Unknown]

NARRATIVE: CASE EVENT DATE: 20101223
